FAERS Safety Report 5126804-8 (Version None)
Quarter: 2006Q4

REPORT INFORMATION
  Report Type: 
  Country: None (occurrence: None)
  Receive Date: 20061010
  Receipt Date: 20060925
  Transmission Date: 20070319
  Serious: No
  Sender: FDA-Public Use
  Company Number: 2006084501

PATIENT
  Age: 81 Year
  Sex: Female
  Weight: 67.1324 kg

DRUGS (2)
  1. SUTENT [Suspect]
     Indication: RENAL CELL CARCINOMA STAGE UNSPECIFIED
     Dosage: 50 MG (50 MG, DAILY EVERY DAY), ORAL
     Route: 048
     Dates: start: 20060701
  2. PROMETHAZINE [Concomitant]

REACTIONS (4)
  - MALAISE [None]
  - NAUSEA [None]
  - THERAPY NON-RESPONDER [None]
  - VOMITING [None]
